FAERS Safety Report 25460818 (Version 1)
Quarter: 2025Q2

REPORT INFORMATION
  Report Type: Spontaneous
  Country: CN (occurrence: CN)
  Receive Date: 20250620
  Receipt Date: 20250620
  Transmission Date: 20250716
  Serious: Yes (Life-Threatening, Other)
  Sender: PFIZER
  Company Number: CN-PFIZER INC-PV202500073462

PATIENT
  Age: 2 Month
  Sex: Male

DRUGS (6)
  1. MEROPENEM [Suspect]
     Active Substance: MEROPENEM
     Indication: Sepsis pasteurella
     Route: 042
  2. MEROPENEM [Suspect]
     Active Substance: MEROPENEM
     Indication: Meningitis bacterial
  3. AMPICILLIN [Suspect]
     Active Substance: AMPICILLIN
     Indication: Sepsis pasteurella
  4. AMPICILLIN [Suspect]
     Active Substance: AMPICILLIN
     Indication: Meningitis bacterial
  5. VANCOMYCIN [Concomitant]
     Active Substance: VANCOMYCIN
     Indication: Adjuvant therapy
     Route: 042
  6. DEXAMETHASONE [Concomitant]
     Active Substance: DEXAMETHASONE
     Indication: Adjuvant therapy
     Route: 042

REACTIONS (1)
  - Drug ineffective [Unknown]
